FAERS Safety Report 21274687 (Version 1)
Quarter: 2022Q3

REPORT INFORMATION
  Report Type: Spontaneous
  Country: US (occurrence: US)
  Receive Date: 20220831
  Receipt Date: 20220831
  Transmission Date: 20221027
  Serious: Yes (Other)
  Sender: FDA-Public Use
  Company Number: US-AMERICAN REGENT INC-2022002223

PATIENT
  Age: 45 Year
  Sex: Female
  Weight: 72.109 kg

DRUGS (7)
  1. FERRIC CARBOXYMALTOSE [Suspect]
     Active Substance: FERRIC CARBOXYMALTOSE
     Indication: Iron deficiency anaemia
     Dosage: 750 MG OVER 2 DAYS, SINGLE
     Route: 042
     Dates: start: 20211118, end: 20211118
  2. FERRIC CARBOXYMALTOSE [Suspect]
     Active Substance: FERRIC CARBOXYMALTOSE
     Dosage: 750 MG OVER 2 DAYS, SINGLE
     Route: 042
     Dates: start: 20211119, end: 20211119
  3. METHOCARBAMOL [Concomitant]
     Active Substance: METHOCARBAMOL
     Indication: Product used for unknown indication
     Dosage: 500 MILLIGRAM, PRN TAKE 2 TABLETS UP TO 4 TIMES DAILY
     Route: 048
  4. MINERALS\VITAMINS [Concomitant]
     Active Substance: MINERALS\VITAMINS
     Indication: Product used for unknown indication
     Dosage: 1 DOSAGE FORM, QD
     Route: 048
  5. PROAIR HFA [Concomitant]
     Active Substance: ALBUTEROL SULFATE
     Indication: Asthma
     Dosage: 90 MICROGRAM, PRN 1-2 PUFFS EVERY 4 TO 6 HOURS
  6. SYMBICORT [Concomitant]
     Active Substance: BUDESONIDE\FORMOTEROL FUMARATE DIHYDRATE
     Indication: Asthma
     Dosage: 160 MCG-4.5 MCG,2 PUFFS  BID
  7. ASCORBIC ACID [Concomitant]
     Active Substance: ASCORBIC ACID
     Indication: Product used for unknown indication
     Dosage: 500 MILLIGRAM
     Route: 048

REACTIONS (6)
  - Hypophosphataemia [Unknown]
  - Heavy menstrual bleeding [Unknown]
  - Asthenia [Recovered/Resolved]
  - Arthralgia [Recovered/Resolved]
  - Nausea [Recovered/Resolved]
  - Inappropriate schedule of product administration [Unknown]

NARRATIVE: CASE EVENT DATE: 20211101
